FAERS Safety Report 8934698 (Version 1)
Quarter: 2012Q4

REPORT INFORMATION
  Report Type: 
  Country: US (occurrence: US)
  Receive Date: 20121129
  Receipt Date: 20121129
  Transmission Date: 20130627
  Serious: Yes (Other)
  Sender: FDA-Public Use
  Company Number: CHPA2012US023832

PATIENT
  Age: 72 Year
  Sex: Female

DRUGS (5)
  1. EXCEDRIN EXTRA STRENGTH [Suspect]
     Indication: ARTHRITIS
     Dosage: 1 or 2 DF, PRN
     Route: 048
     Dates: start: 1960, end: 2010
  2. TRAMADOL [Concomitant]
     Indication: ARTHRITIS
     Dosage: 50 mg, QD
  3. TRAMADOL [Concomitant]
     Indication: FIBROMYALGIA
  4. CELEBREX [Concomitant]
     Indication: ARTHRITIS
     Dosage: 200 mg, QD
  5. ELIVEL [Concomitant]
     Indication: INSOMNIA
     Dosage: 2 TABLETS, PER NIGHT

REACTIONS (5)
  - Fibromyalgia [Recovered/Resolved]
  - Sciatica [Recovered/Resolved]
  - Headache [Recovered/Resolved]
  - Movement disorder [Recovered/Resolved]
  - Underdose [Unknown]
